FAERS Safety Report 7820024 (Version 4)
Quarter: 2014Q2

REPORT INFORMATION
  Report Type: Report from Study
  Country: DE (occurrence: DE)
  Receive Date: 20110221
  Receipt Date: 20140611
  Transmission Date: 20141212
  Serious: Yes (Hospitalization, Other)
  Sender: FDA-Public Use
  Company Number: PHHO2011DE02772

PATIENT
  Age: 32 Year
  Sex: Female
  Weight: 99 kg

DRUGS (10)
  1. CGP 57148B [Suspect]
     Indication: PULMONARY ARTERIAL HYPERTENSION
     Dosage: UNK
     Route: 048
     Dates: start: 20110204, end: 20110224
  2. MARCUMAR [Concomitant]
     Indication: PULMONARY ARTERIAL HYPERTENSION
  3. SPIRONOLACTONE [Concomitant]
     Indication: PULMONARY ARTERIAL HYPERTENSION
  4. EUTHYROX [Concomitant]
     Indication: HYPOTHYROIDISM
  5. KALINOR-RETARD P [Concomitant]
     Indication: PROPHYLAXIS
  6. TOREM [Concomitant]
     Indication: PULMONARY ARTERIAL HYPERTENSION
  7. REVATIO [Concomitant]
     Indication: PULMONARY ARTERIAL HYPERTENSION
  8. TRACLEER [Concomitant]
     Indication: PULMONARY ARTERIAL HYPERTENSION
  9. OXYGEN [Concomitant]
  10. SILDENAFIL [Concomitant]

REACTIONS (19)
  - Right ventricular failure [Recovered/Resolved]
  - Pyrexia [Recovered/Resolved]
  - Respiratory failure [Recovered/Resolved]
  - Cardiomegaly [Recovered/Resolved]
  - Pulmonary congestion [Recovered/Resolved]
  - Electrocardiogram ST segment depression [Recovered/Resolved]
  - Electrocardiogram T wave inversion [Recovered/Resolved]
  - Chest discomfort [Recovered/Resolved]
  - Dyspnoea exertional [Recovered/Resolved]
  - Palpitations [Recovered/Resolved]
  - Oedema peripheral [Recovered/Resolved]
  - Weight increased [Recovered/Resolved]
  - General physical health deterioration [Recovered/Resolved]
  - Sensory disturbance [Recovered/Resolved]
  - Myalgia [Recovered/Resolved]
  - Fluid retention [Recovered/Resolved]
  - Cough [Recovered/Resolved]
  - Lymphadenopathy [Recovered/Resolved]
  - Insomnia [Recovered/Resolved]
